FAERS Safety Report 4459219-6 (Version None)
Quarter: 2004Q3

REPORT INFORMATION
  Report Type: 
  Country: None (occurrence: None)
  Receive Date: 20040927
  Receipt Date: 20040915
  Transmission Date: 20050211
  Serious: Yes (Other)
  Sender: FDA-Public Use
  Company Number: US-JNJFOC-20040905580

PATIENT
  Age: 42 Year
  Sex: Female
  Weight: 77.11 kg

DRUGS (1)
  1. ORTHO EVRA [Suspect]
     Indication: CONTRACEPTION
     Route: 062
     Dates: start: 20040101

REACTIONS (4)
  - ANGIONEUROTIC OEDEMA [None]
  - MUSCLE CRAMP [None]
  - PHOTOPHOBIA [None]
  - TEMPERATURE INTOLERANCE [None]
